FAERS Safety Report 24609173 (Version 1)
Quarter: 2024Q4

REPORT INFORMATION
  Report Type: Spontaneous
  Country: US (occurrence: US)
  Receive Date: 20241112
  Receipt Date: 20241112
  Transmission Date: 20250114
  Serious: No
  Sender: EISAI
  Company Number: US-Eisai-EC-2024-177267

PATIENT
  Age: 73 Year
  Sex: Female

DRUGS (6)
  1. LEQEMBI [Suspect]
     Active Substance: LECANEMAB-IRMB
     Indication: Dementia Alzheimer^s type
     Dosage: DOSE UNKNOWN
     Route: 042
     Dates: start: 20240606
  2. RIVASTIGMINE [Concomitant]
     Active Substance: RIVASTIGMINE
  3. FAMOTIDINE [Concomitant]
     Active Substance: FAMOTIDINE
  4. LISINOPRIL [Concomitant]
     Active Substance: LISINOPRIL
  5. ROSUVASTATIN [Concomitant]
     Active Substance: ROSUVASTATIN
  6. COLESTIPOL [Concomitant]
     Active Substance: COLESTIPOL

REACTIONS (5)
  - Fatigue [Recovering/Resolving]
  - Headache [Recovering/Resolving]
  - Feeling jittery [Recovered/Resolved]
  - Muscular weakness [Unknown]
  - Rhinovirus infection [Unknown]

NARRATIVE: CASE EVENT DATE: 20241001
